FAERS Safety Report 8586190-8 (Version None)
Quarter: 2012Q3

REPORT INFORMATION
  Report Type: 
  Country: None (occurrence: None)
  Receive Date: 20120810
  Receipt Date: 20120731
  Transmission Date: 20120928
  Serious: Yes (Other)
  Sender: FDA-Public Use
  Company Number: KE-GLAXOSMITHKLINE-B0820690A

PATIENT
  Age: 52 Year
  Sex: Male
  Weight: 65 kg

DRUGS (1)
  1. ARIXTRA [Suspect]
     Indication: PRODUCT USED FOR UNKNOWN INDICATION
     Route: 065

REACTIONS (2)
  - ASTHENIA [None]
  - HAEMORRHAGE [None]
